FAERS Safety Report 5672305-8 (Version None)
Quarter: 2008Q2

REPORT INFORMATION
  Report Type: 
  Country: None (occurrence: None)
  Receive Date: 20080219
  Receipt Date: 20071105
  Transmission Date: 20081010
  Serious: No
  Sender: FDA-Public Use
  Company Number: TPA2007A02289

PATIENT
  Age: 28 Year
  Sex: Female
  Weight: 72.5755 kg

DRUGS (3)
  1. ROZEREM [Suspect]
     Indication: INSOMNIA
     Dosage: 8 MG, QHS, PER ORAL
     Route: 048
     Dates: start: 20061105, end: 20070801
  2. PERCOCET (PARACETAMOL, OXYCODONE HYDROCHLORIDE) (TABLETS) [Concomitant]
  3. FENTANYL [Concomitant]

REACTIONS (1)
  - INFERTILITY FEMALE [None]
